FAERS Safety Report 5334505-6 (Version None)
Quarter: 2007Q2

REPORT INFORMATION
  Report Type: 
  Country: None (occurrence: None)
  Receive Date: 20070308
  Receipt Date: 20061121
  Transmission Date: 20071010
  Serious: No
  Sender: FDA-Public Use
  Company Number: 2006-BP-13011BP

PATIENT
  Sex: Male

DRUGS (2)
  1. SPIRIVA [Suspect]
     Indication: CHRONIC OBSTRUCTIVE PULMONARY DISEASE
     Dosage: 18 MG (18 MCG, 1 IN 1 D), IH
     Route: 055
     Dates: start: 20061031, end: 20061121
  2. ADVAIR DISKUS 100/50 [Concomitant]

REACTIONS (3)
  - APHTHOUS STOMATITIS [None]
  - ORAL PAIN [None]
  - TONGUE BLISTERING [None]
